FAERS Safety Report 16394133 (Version 1)
Quarter: 2019Q2

REPORT INFORMATION
  Report Type: Spontaneous
  Country: ES (occurrence: ES)
  Receive Date: 20190605
  Receipt Date: 20190605
  Transmission Date: 20190711
  Serious: Yes (Hospitalization)
  Sender: FDA-Public Use
  Company Number: ES-ELI_LILLY_AND_COMPANY-ES201906000669

PATIENT
  Age: 11 Year

DRUGS (2)
  1. DULOXETINE HYDROCHLORIDE. [Suspect]
     Active Substance: DULOXETINE HYDROCHLORIDE
     Indication: ACCIDENTAL EXPOSURE TO PRODUCT
     Dosage: 60 MG, UNKNOWN
     Route: 048
  2. BUPROPION. [Suspect]
     Active Substance: BUPROPION
     Indication: ACCIDENTAL EXPOSURE TO PRODUCT
     Dosage: 300 MG, UNKNOWN
     Route: 048

REACTIONS (10)
  - Accidental poisoning [Recovered/Resolved]
  - Hallucination, visual [Recovered/Resolved]
  - Sinus tachycardia [Recovered/Resolved]
  - Ataxia [Recovered/Resolved]
  - Hypertension [Recovered/Resolved]
  - Speech disorder [Recovered/Resolved]
  - Accidental exposure to product by child [Recovered/Resolved]
  - Metabolic acidosis [Recovered/Resolved]
  - Bradyphrenia [Recovered/Resolved]
  - Mydriasis [Recovered/Resolved]
